FAERS Safety Report 8804615 (Version 1)
Quarter: 2012Q4

REPORT INFORMATION
  Report Type: 
  Country: AT (occurrence: AT)
  Receive Date: 20120924
  Receipt Date: 20120924
  Transmission Date: 20130627
  Serious: Yes (Hospitalization)
  Sender: FDA-Public Use
  Company Number: AT-ABBOTT-12P-009-0977196-00

PATIENT
  Age: 62 Year
  Sex: Male

DRUGS (2)
  1. COMPETACT [Suspect]
     Indication: TYPE 2 DIABETES MELLITUS
     Dosage: PIOGLITAZONE/METFORMIN 30/1700mg
     Route: 048
     Dates: start: 20091201
  2. SIMVASTATIN [Concomitant]
     Indication: PRODUCT USED FOR UNKNOWN INDICATION
     Dosage: 20 mg (unk., 0-0-1)
     Route: 048

REACTIONS (1)
  - Bladder cancer [Not Recovered/Not Resolved]
